FAERS Safety Report 12105679 (Version 1)
Quarter: 2016Q1

REPORT INFORMATION
  Report Type: Spontaneous
  Country: US (occurrence: US)
  Receive Date: 20160223
  Receipt Date: 20160223
  Transmission Date: 20160526
  Serious: No
  Sender: FDA-Public Use
  Company Number: US-BAYER-2016-034936

PATIENT
  Sex: Male

DRUGS (2)
  1. CLARITIN-D 24 HOUR [Suspect]
     Active Substance: LORATADINE\PSEUDOEPHEDRINE SULFATE
     Indication: MULTIPLE ALLERGIES
     Dosage: 1 DF, ONCE
     Route: 048
     Dates: start: 20160218, end: 20160218
  2. CLARITIN-D 24 HOUR [Suspect]
     Active Substance: LORATADINE\PSEUDOEPHEDRINE SULFATE
     Indication: SINUS CONGESTION

REACTIONS (4)
  - Dehydration [Recovered/Resolved]
  - Insomnia [Recovered/Resolved]
  - Thirst [Recovered/Resolved]
  - Lip dry [Recovered/Resolved]

NARRATIVE: CASE EVENT DATE: 20160218
